FAERS Safety Report 18016416 (Version 1)
Quarter: 2020Q3

REPORT INFORMATION
  Report Type: Report from Study
  Country: US (occurrence: US)
  Receive Date: 20200714
  Receipt Date: 20200714
  Transmission Date: 20201103
  Serious: Yes (Hospitalization)
  Sender: FDA-Public Use
  Company Number: US-BRISTOL-MYERS SQUIBB COMPANY-BMS-2020-055193

PATIENT
  Age: 60 Year
  Sex: Male
  Weight: 89.3 kg

DRUGS (2)
  1. IPILIMUMAB [Suspect]
     Active Substance: IPILIMUMAB
     Indication: GALLBLADDER CANCER
     Dosage: 90 MILLIGRAM, Q6WK
     Route: 042
     Dates: start: 20180803
  2. NIVOLUMAB [Suspect]
     Active Substance: NIVOLUMAB
     Indication: GALLBLADDER CANCER
     Dosage: 240 MILLIGRAM, Q2WK
     Route: 042
     Dates: start: 20180803

REACTIONS (1)
  - Confusional state [Recovered/Resolved]

NARRATIVE: CASE EVENT DATE: 20200113
